FAERS Safety Report 6715451-X (Version None)
Quarter: 2010Q2

REPORT INFORMATION
  Report Type: 
  Country: None (occurrence: None)
  Receive Date: 20100507
  Receipt Date: 20100504
  Transmission Date: 20101027
  Serious: Yes (Death, Hospitalization)
  Sender: FDA-Public Use
  Company Number: TH-CELGENEUS-155-C5013-10050196

PATIENT
  Sex: Female

DRUGS (2)
  1. CC-5013 [Suspect]
     Indication: MULTIPLE MYELOMA
     Route: 048
     Dates: start: 20100115
  2. CC-5013 [Suspect]
     Route: 048
     Dates: start: 20091127, end: 20100114

REACTIONS (1)
  - DEATH [None]
